FAERS Safety Report 24107016 (Version 1)
Quarter: 2024Q3

REPORT INFORMATION
  Report Type: Spontaneous
  Country: US (occurrence: US)
  Receive Date: 20240717
  Receipt Date: 20240717
  Transmission Date: 20241017
  Serious: Yes (Other)
  Sender: JOHNSON AND JOHNSON
  Company Number: US-JNJFOC-20240729014

PATIENT
  Age: 15 Year
  Sex: Male

DRUGS (2)
  1. RISPERDAL [Suspect]
     Active Substance: RISPERIDONE
     Indication: Product used for unknown indication
     Dosage: IN VARYING DOSES AND FREQUENCIES OF 0.5 MG, 1 MG
     Route: 048
  2. RISPERDAL [Suspect]
     Active Substance: RISPERIDONE
     Dosage: IN VARYING DOSES AND FREQUENCIES OF 1MG, 2.5 MG, AND 3 MG
     Route: 048
     Dates: start: 20080422

REACTIONS (2)
  - Mental impairment [Unknown]
  - Nausea [Unknown]

NARRATIVE: CASE EVENT DATE: 20080101
